FAERS Safety Report 9775201 (Version 1)
Quarter: 2013Q4

REPORT INFORMATION
  Report Type: Spontaneous
  Country: IT (occurrence: IT)
  Receive Date: 20131220
  Receipt Date: 20131220
  Transmission Date: 20140711
  Serious: Yes (Life-Threatening, Other)
  Sender: FDA-Public Use
  Company Number: IT-TEVA-450961ISR

PATIENT
  Age: 93 Year
  Sex: Male

DRUGS (6)
  1. LORAZEPAM [Suspect]
     Indication: COGNITIVE DISORDER
     Dosage: 1 MILLIGRAM DAILY; 1 MG DAILY
     Route: 048
     Dates: end: 20130920
  2. STILNOX [Suspect]
     Indication: COGNITIVE DISORDER
     Dosage: 10 MILLIGRAM DAILY; 10 MG DAILY
     Route: 048
     Dates: end: 20130920
  3. PANTORC - 20 MG COMPRESSE GASTRORESISTENTI [Concomitant]
     Indication: PROPHYLAXIS AGAINST GASTROINTESTINAL ULCER
     Dosage: GASTRO-RESISTANT CAPSULE, HARD
     Dates: end: 20130920
  4. SEROQUEL - 50 MG COMPRESSE A RILASCIO PROLUNGATO [Concomitant]
  5. HALDOL - 2MG/ML GOCCE ORALI, SOLUZIONE [Concomitant]
     Indication: AGITATION
     Dosage: ORAL DROPS, SOLUTION
  6. CARDIOASPIRIN - 100 MG COMPRESSE GASTRORESISTENTI [Concomitant]
     Indication: THROMBOSIS PROPHYLAXIS
     Dosage: GASTRO-RESISTANT TABLET

REACTIONS (4)
  - Subdural haematoma [Recovering/Resolving]
  - Fall [Recovering/Resolving]
  - Cholecystitis acute [Unknown]
  - Sepsis [Unknown]
